FAERS Safety Report 24036980 (Version 1)
Quarter: 2024Q3

REPORT INFORMATION
  Report Type: Spontaneous
  Country: US (occurrence: US)
  Receive Date: 20240701
  Receipt Date: 20240701
  Transmission Date: 20241017
  Serious: No
  Sender: UPSHER-SMITH
  Company Number: US-UPSHER-SMITH LABORATORIES, LLC-2024USL00378

PATIENT
  Age: 49 Year
  Sex: Male
  Weight: 99.773 kg

DRUGS (2)
  1. BRIMONIDINE TARTRATE AND TIMOLOL MALEATE OPHTHALMIC SOLUTION 0.2% EQ 0 [Suspect]
     Active Substance: BRIMONIDINE TARTRATE\TIMOLOL MALEATE
     Indication: Open angle glaucoma
     Dosage: 2 DROPS DAILY IN RIGHT EYE, 1X/DAY
     Route: 047
  2. LATANOPROST [Concomitant]
     Active Substance: LATANOPROST
     Dosage: UNK, 1X/DAY
     Route: 047

REACTIONS (4)
  - Reaction to preservatives [Not Recovered/Not Resolved]
  - Eye irritation [Not Recovered/Not Resolved]
  - Incorrect dose administered by device [Not Recovered/Not Resolved]
  - Device delivery system issue [Not Recovered/Not Resolved]
